FAERS Safety Report 11350640 (Version 2)
Quarter: 2015Q3

REPORT INFORMATION
  Report Type: Spontaneous
  Country: US (occurrence: US)
  Receive Date: 20150807
  Receipt Date: 20150902
  Transmission Date: 20151125
  Serious: Yes (Other)
  Sender: FDA-Public Use
  Company Number: PHHY2015US094819

PATIENT
  Sex: Male

DRUGS (5)
  1. BACLOFEN INTRATHECAL [Suspect]
     Active Substance: BACLOFEN
     Indication: PAIN
     Dosage: 234.9 UG, QD
     Route: 037
  2. DILAUDID [Suspect]
     Active Substance: HYDROMORPHONE HYDROCHLORIDE
     Indication: PRODUCT USED FOR UNKNOWN INDICATION
     Dosage: 4.69 MG, QD
     Route: 037
  3. CLONIDINE. [Suspect]
     Active Substance: CLONIDINE
     Indication: PRODUCT USED FOR UNKNOWN INDICATION
     Dosage: 117.4 UG, QD
     Route: 037
  4. TRAMADOL. [Suspect]
     Active Substance: TRAMADOL
     Indication: PRODUCT USED FOR UNKNOWN INDICATION
     Dosage: 1 DF, Q6H
     Route: 048
  5. MARCAINE [Suspect]
     Active Substance: BUPIVACAINE HYDROCHLORIDE
     Indication: PRODUCT USED FOR UNKNOWN INDICATION
     Dosage: 1.42 MG/DAY
     Route: 037

REACTIONS (10)
  - Face injury [Unknown]
  - Anxiety [Unknown]
  - Spinal cord injury [Unknown]
  - Abdominal discomfort [Unknown]
  - Back pain [Unknown]
  - Pain [Unknown]
  - Drug withdrawal syndrome [Unknown]
  - Fall [Unknown]
  - Malaise [Unknown]
  - Joint injury [Unknown]

NARRATIVE: CASE EVENT DATE: 2013
